FAERS Safety Report 25646935 (Version 1)
Quarter: 2025Q3

REPORT INFORMATION
  Report Type: Spontaneous
  Country: US (occurrence: US)
  Receive Date: 20250805
  Receipt Date: 20250805
  Transmission Date: 20251020
  Serious: Yes (Life-Threatening, Hospitalization)
  Sender: TEVA
  Company Number: US-TEVA-VS-3358232

PATIENT
  Age: 54 Year
  Sex: Male

DRUGS (3)
  1. NALOXONE [Suspect]
     Active Substance: NALOXONE
     Indication: Catatonia
     Route: 065
  2. ATROPINE [Concomitant]
     Active Substance: ATROPINE
     Indication: Bradycardia
  3. EPINEPHRINE [Concomitant]
     Active Substance: EPINEPHRINE
     Indication: Cardiac resynchronisation therapy
     Route: 042

REACTIONS (1)
  - Therapy non-responder [Unknown]
